FAERS Safety Report 23378453 (Version 1)
Quarter: 2024Q1

REPORT INFORMATION
  Report Type: Spontaneous
  Country: US (occurrence: None)
  Receive Date: 20240106
  Receipt Date: 20240106
  Transmission Date: 20240409
  Serious: No
  Sender: FDA-Public Use
  Company Number: None

PATIENT
  Age: 77 Year
  Weight: 77.11 kg

DRUGS (1)
  1. AUSTEDO [Suspect]
     Active Substance: DEUTETRABENAZINE
     Indication: Tardive dyskinesia
     Dosage: FREQUENCY : TWICE A DAY;?
     Dates: start: 20231214

REACTIONS (2)
  - Rash [None]
  - Rash [None]

NARRATIVE: CASE EVENT DATE: 20231215
